FAERS Safety Report 6124265-3 (Version None)
Quarter: 2009Q1

REPORT INFORMATION
  Report Type: 
  Country: None (occurrence: None)
  Receive Date: 20090317
  Receipt Date: 20090305
  Transmission Date: 20090719
  Serious: Yes (Hospitalization, Other)
  Sender: FDA-Public Use
  Company Number: 232199K09USA

PATIENT
  Age: 58 Year
  Sex: Female
  Weight: 66 kg

DRUGS (12)
  1. REBIF [Suspect]
     Indication: MULTIPLE SCLEROSIS
     Dosage: 44 MCG, 3 IN 1 WEEKS, SUBCUTANEOUS
     Route: 058
     Dates: start: 20051219
  2. COFEX (GUAIFENENESIN W/DEXTROMETHORPHAN) [Concomitant]
  3. EFFEXOR XR [Concomitant]
  4. LYRICA [Concomitant]
  5. CLONAZEPAM [Concomitant]
  6. VYTORIN [Concomitant]
  7. PROTONIX [Concomitant]
  8. ZOMIG [Concomitant]
  9. DETROL LA [Concomitant]
  10. TRICOR [Concomitant]
  11. AMBIEN [Concomitant]
  12. HYDROCODONE (HYDROCODONE) [Concomitant]

REACTIONS (15)
  - ASTHENIA [None]
  - BLOOD PRESSURE DECREASED [None]
  - CHEST PAIN [None]
  - DIABETES MELLITUS [None]
  - DIZZINESS [None]
  - DYSARTHRIA [None]
  - FATIGUE [None]
  - GAIT DISTURBANCE [None]
  - HEADACHE [None]
  - HEART RATE DECREASED [None]
  - HYPERHIDROSIS [None]
  - INFUSION SITE EXTRAVASATION [None]
  - MYELITIS TRANSVERSE [None]
  - NAUSEA [None]
  - VITAMIN B12 DECREASED [None]
